FAERS Safety Report 4520268-0 (Version None)
Quarter: 2005Q1

REPORT INFORMATION
  Report Type: 
  Country: None (occurrence: None)
  Receive Date: 20041026
  Receipt Date: 20030711
  Transmission Date: 20050727
  Serious: Yes (Other)
  Sender: FDA-Public Use
  Company Number: 03P183

PATIENT
  Sex: Female

DRUGS (3)
  1. CLINDAMAX GEL (CLINDAMYCIN PHOSPHATE 1%) [Suspect]
     Indication: ACNE
     Dosage: APPLY @ BEDTIME
     Dates: start: 20030606
  2. CLINDAMAX GEL (CLINDAMYCIN PHOSPHATE 1%) [Suspect]
     Indication: ROSACEA
     Dosage: APPLY @ BEDTIME
     Dates: start: 20030606
  3. SYNTHROID [Concomitant]

REACTIONS (1)
  - DIARRHOEA [None]
